FAERS Safety Report 20000938 (Version 1)
Quarter: 2021Q4

REPORT INFORMATION
  Report Type: Spontaneous
  Country: US (occurrence: US)
  Receive Date: 20211027
  Receipt Date: 20211027
  Transmission Date: 20220303
  Serious: Yes (Life-Threatening, Hospitalization, Other)
  Sender: FDA-Public Use
  Company Number: US-SUN PHARMACEUTICAL INDUSTRIES LTD-2021R1-315427

PATIENT
  Age: 29 Year
  Sex: Female

DRUGS (1)
  1. SOTALOL [Suspect]
     Active Substance: SOTALOL
     Indication: Product used for unknown indication
     Dosage: 60 TABLETS OF 80 MG
     Route: 048

REACTIONS (5)
  - Overdose [Unknown]
  - Suicide attempt [Unknown]
  - Electrocardiogram QT prolonged [Unknown]
  - Bradycardia [Unknown]
  - Hypotension [Unknown]
